FAERS Safety Report 7880673-1 (Version None)
Quarter: 2011Q4

REPORT INFORMATION
  Report Type: 
  Country: None (occurrence: None)
  Receive Date: 20111101
  Receipt Date: 20111017
  Transmission Date: 20120403
  Serious: Yes (Life-Threatening, Hospitalization, Other)
  Sender: FDA-Public Use
  Company Number: GR-PFIZER INC-2011179788

PATIENT
  Age: 65 Year
  Sex: Male

DRUGS (19)
  1. ITRACONAZOLE [Interacting]
     Indication: SYSTEMIC CANDIDA
     Dosage: UNK MG, UNK
     Route: 042
  2. ITRACONAZOLE [Interacting]
     Indication: FUNGAEMIA
     Dosage: 200 MG, UNK
     Route: 042
  3. AMIODARONE HCL [Interacting]
     Indication: ATRIAL FIBRILLATION
     Dosage: 200 MG DAILY
     Route: 048
  4. AMIODARONE HCL [Interacting]
     Indication: HEART RATE ABNORMAL
  5. AMIODARONE HCL [Interacting]
     Indication: HEART RATE INCREASED
  6. CANCIDAS [Concomitant]
  7. PANTOPRAZOLE [Concomitant]
  8. ANTIBIOTICS [Concomitant]
  9. AMIODARONE HCL [Suspect]
     Indication: HEART RATE INCREASED
     Dosage: UNK
     Route: 042
  10. ALL OTHER THERAPEUTIC PRODUCTS [Concomitant]
  11. AMIODARONE HCL [Suspect]
     Indication: HEART RATE ABNORMAL
  12. LASIX [Concomitant]
  13. ARIXTRA [Concomitant]
  14. ULTRA-LEVURE [Concomitant]
  15. ITRACONAZOLE [Interacting]
     Indication: EVIDENCE BASED TREATMENT
     Dosage: 200 MG, UNK
     Route: 042
  16. AMIODARONE HCL [Suspect]
     Indication: ATRIAL FIBRILLATION
     Dosage: 300 MG BOLUS
     Route: 042
  17. IRON [Concomitant]
  18. MEROPENEM [Concomitant]
  19. PLASBUMIN [Concomitant]

REACTIONS (3)
  - HYPOTENSION [None]
  - DRUG INTERACTION [None]
  - CARDIAC ARREST [None]
